FAERS Safety Report 5398599-4 (Version None)
Quarter: 2007Q3

REPORT INFORMATION
  Report Type: 
  Country: None (occurrence: None)
  Receive Date: 20070725
  Receipt Date: 20070718
  Transmission Date: 20080115
  Serious: Yes (Death)
  Sender: FDA-Public Use
  Company Number: ABOHS-07-0632

PATIENT
  Age: 56 Year
  Sex: Female
  Weight: 65 kg

DRUGS (3)
  1. ABRAXANE [Suspect]
     Indication: BREAST CANCER METASTATIC
     Dosage: INTRAVENOUS
     Route: 042
     Dates: start: 20060901, end: 20070508
  2. ARIMIDEX [Suspect]
     Indication: BREAST CANCER METASTATIC
  3. GEMZAR [Concomitant]

REACTIONS (3)
  - ABDOMINAL DISTENSION [None]
  - HEPATIC VEIN THROMBOSIS [None]
  - METASTASES TO LIVER [None]
